FAERS Safety Report 24670761 (Version 1)
Quarter: 2024Q4

REPORT INFORMATION
  Report Type: Spontaneous
  Country: US (occurrence: None)
  Receive Date: 20241127
  Receipt Date: 20241127
  Transmission Date: 20250115
  Serious: Yes (Hospitalization)
  Sender: Public
  Company Number: None

PATIENT
  Sex: Male

DRUGS (3)
  1. ABIRATERONE ACETATE [Suspect]
     Active Substance: ABIRATERONE ACETATE
     Indication: Prostate cancer
     Dosage: FREQUENCY : DAILY;?
     Route: 048
     Dates: start: 202307
  2. CLONIDINE [Suspect]
     Active Substance: CLONIDINE
  3. PREDNISONE [Suspect]
     Active Substance: PREDNISONE

REACTIONS (2)
  - Blood pressure increased [None]
  - Therapy interrupted [None]
